FAERS Safety Report 7459726-8 (Version None)
Quarter: 2011Q2

REPORT INFORMATION
  Report Type: 
  Country: None (occurrence: None)
  Receive Date: 20110505
  Receipt Date: 20110421
  Transmission Date: 20111010
  Serious: No
  Sender: FDA-Public Use
  Company Number: US-B.I. PHARMACEUTICALS,INC./RIDGEFIELD-2011-BP-06194BP

PATIENT
  Age: 83 Year
  Sex: Male

DRUGS (3)
  1. PLAVIX [Suspect]
  2. PRADAXA [Suspect]
     Indication: ATRIAL FIBRILLATION
     Dosage: 300 MG
     Route: 048
  3. ASPIRIN [Suspect]

REACTIONS (5)
  - SKIN IRRITATION [None]
  - PRURITUS [None]
  - IMPAIRED HEALING [None]
  - SKIN HAEMORRHAGE [None]
  - HAEMORRHAGE [None]
